FAERS Safety Report 6547179-3 (Version None)
Quarter: 2010Q1

REPORT INFORMATION
  Report Type: 
  Country: None (occurrence: None)
  Receive Date: 20100122
  Receipt Date: 20100114
  Transmission Date: 20100710
  Serious: Yes (Other)
  Sender: FDA-Public Use
  Company Number: GXKR2010ES00830

PATIENT

DRUGS (1)
  1. NITROGLYCERIN (NGX) [Suspect]

REACTIONS (3)
  - ARRHYTHMIA [None]
  - ATAXIA [None]
  - LOSS OF CONSCIOUSNESS [None]
